FAERS Safety Report 21214843 (Version 1)
Quarter: 2022Q3

REPORT INFORMATION
  Report Type: Spontaneous
  Country: US (occurrence: US)
  Receive Date: 20220816
  Receipt Date: 20220816
  Transmission Date: 20221027
  Serious: No
  Sender: FDA-Public Use
  Company Number: US-BIOGEN-2022BI01144619

PATIENT
  Sex: Female

DRUGS (6)
  1. TECFIDERA [Suspect]
     Active Substance: DIMETHYL FUMARATE
     Indication: Multiple sclerosis
     Route: 050
  2. GABAPENTIN [Concomitant]
     Active Substance: GABAPENTIN
     Route: 050
  3. BACLOFEN [Concomitant]
     Active Substance: BACLOFEN
     Route: 050
  4. ALBUTEROL SULFATE [Concomitant]
     Active Substance: ALBUTEROL SULFATE
     Route: 050
  5. ACETAMINOPHEN\HYDROCODONE [Concomitant]
     Active Substance: ACETAMINOPHEN\HYDROCODONE
     Route: 050
  6. ASPIRIN [Concomitant]
     Active Substance: ASPIRIN
     Route: 050

REACTIONS (1)
  - Chronic obstructive pulmonary disease [Unknown]
